FAERS Safety Report 15194269 (Version 1)
Quarter: 2018Q3

REPORT INFORMATION
  Report Type: Spontaneous
  Country: CH (occurrence: CH)
  Receive Date: 20180725
  Receipt Date: 20180725
  Transmission Date: 20181010
  Serious: Yes (Other)
  Sender: FDA-Public Use
  Company Number: CH-TEVA-2018-CH-929669

PATIENT
  Sex: Female

DRUGS (2)
  1. AMOXI?MEPHA [Suspect]
     Active Substance: AMOXICILLIN
     Indication: PRODUCT USED FOR UNKNOWN INDICATION
     Route: 065
  2. AMOXI?MEPHA LACTAB [Suspect]
     Active Substance: AMOXICILLIN
     Route: 065

REACTIONS (2)
  - Drug prescribing error [Unknown]
  - Exposure via breast milk [Unknown]

NARRATIVE: CASE EVENT DATE: 2018
